FAERS Safety Report 5536033-1 (Version None)
Quarter: 2007Q4

REPORT INFORMATION
  Report Type: 
  Country: None (occurrence: None)
  Receive Date: 20071206
  Receipt Date: 20071122
  Transmission Date: 20080405
  Serious: Yes (Death)
  Sender: FDA-Public Use
  Company Number: JP-GENENTECH-252115

PATIENT
  Sex: Female

DRUGS (8)
  1. BEVACIZUMAB [Suspect]
     Indication: COLON CANCER METASTATIC
     Dosage: 5 MG/KG, QD
     Route: 042
     Dates: start: 20070928, end: 20070928
  2. FLUOROURACIL [Suspect]
     Indication: COLON CANCER METASTATIC
     Dosage: 550 MG, UNK
     Route: 042
     Dates: start: 20070928, end: 20070928
  3. ISOVORIN [Suspect]
     Indication: COLON CANCER METASTATIC
     Dosage: 300 MG, UNK
     Route: 042
     Dates: start: 20070928, end: 20070928
  4. OXALIPLATIN [Suspect]
     Indication: COLON CANCER METASTATIC
     Dosage: 120 MG, UNK
     Route: 042
     Dates: start: 20070928, end: 20070928
  5. ASPARA [Concomitant]
     Indication: DRUG USE FOR UNKNOWN INDICATION
     Dates: start: 20070928, end: 20070928
  6. DECADRON PHOSPHATE [Concomitant]
     Indication: DRUG USE FOR UNKNOWN INDICATION
     Dates: start: 20070928, end: 20070928
  7. CALCIUM GLUCONATE [Concomitant]
     Indication: DRUG USE FOR UNKNOWN INDICATION
     Dates: start: 20070928, end: 20070928
  8. KYTRIL [Concomitant]
     Indication: DRUG USE FOR UNKNOWN INDICATION
     Dates: start: 20070928, end: 20070928

REACTIONS (1)
  - DEATH [None]
